FAERS Safety Report 4352646-7 (Version None)
Quarter: 2004Q2

REPORT INFORMATION
  Report Type: 
  Country: None (occurrence: None)
  Receive Date: 20040504
  Receipt Date: 20040422
  Transmission Date: 20050107
  Serious: Yes (Hospitalization)
  Sender: FDA-Public Use
  Company Number: JP-MERCK-0404USA02572

PATIENT
  Age: 25 Year
  Sex: Male

DRUGS (9)
  1. LENDORM [Concomitant]
     Route: 048
     Dates: start: 20030518
  2. BUPRENORPHINE HYDROCHLORIDE [Concomitant]
     Route: 054
     Dates: start: 20030518
  3. CEFOTIAM HYDROCHLORIDE [Concomitant]
     Route: 048
     Dates: start: 20030519
  4. STRONGER NEO-MINOPHAGEN C [Concomitant]
     Route: 042
     Dates: start: 20030516
  5. VOLTAREN [Suspect]
     Indication: PAIN
     Route: 048
     Dates: start: 20030515, end: 20030602
  6. FARMORUBICIN [Concomitant]
     Route: 065
     Dates: start: 20030514
  7. PEPCID [Suspect]
     Route: 048
     Dates: start: 20030516, end: 20030605
  8. GELATIN [Concomitant]
     Route: 065
     Dates: start: 20030514
  9. GLUTATHIONE [Concomitant]
     Route: 042
     Dates: start: 20030516

REACTIONS (1)
  - RHABDOMYOLYSIS [None]
